FAERS Safety Report 14443853 (Version 1)
Quarter: 2018Q1

REPORT INFORMATION
  Report Type: Spontaneous
  Country: US (occurrence: US)
  Receive Date: 20180125
  Receipt Date: 20180125
  Transmission Date: 20180509
  Serious: No
  Sender: FDA-Public Use
  Company Number: US-ELI_LILLY_AND_COMPANY-US201801010312

PATIENT
  Sex: Female

DRUGS (4)
  1. TRULICITY [Suspect]
     Active Substance: DULAGLUTIDE
     Indication: PRODUCT USED FOR UNKNOWN INDICATION
     Dosage: UNK, UNKNOWN
     Route: 065
  2. LANTUS [Concomitant]
     Active Substance: INSULIN GLARGINE
     Dosage: 35 U, DAILY
  3. TOUJEO [Concomitant]
     Active Substance: INSULIN GLARGINE
     Dosage: 64 U, TID
  4. TRULICITY [Suspect]
     Active Substance: DULAGLUTIDE
     Dosage: UNK, UNKNOWN
     Route: 065
     Dates: start: 20180119

REACTIONS (5)
  - Feeling abnormal [Unknown]
  - Blood glucose fluctuation [Unknown]
  - Somnolence [Unknown]
  - Gait disturbance [Unknown]
  - Dizziness [Unknown]
